FAERS Safety Report 25992783 (Version 2)
Quarter: 2025Q4

REPORT INFORMATION
  Report Type: Spontaneous
  Country: US (occurrence: US)
  Receive Date: 20251103
  Receipt Date: 20251114
  Transmission Date: 20260118
  Serious: Yes (Other)
  Sender: BAUSCH AND LOMB
  Company Number: US-BAUSCHBL-2025BNL030999

PATIENT
  Age: 68 Year
  Sex: Female

DRUGS (3)
  1. DORZOLAMIDE HYDROCHLORIDE [Suspect]
     Active Substance: DORZOLAMIDE HYDROCHLORIDE
     Indication: Intraocular pressure increased
     Route: 047
     Dates: start: 2020
  2. LATANOPROST [Suspect]
     Active Substance: LATANOPROST
     Indication: Glaucoma
     Route: 047
     Dates: start: 2018
  3. TIMOLOL [Concomitant]
     Active Substance: TIMOLOL
     Indication: Product used for unknown indication
     Route: 047

REACTIONS (15)
  - Retinal detachment [Unknown]
  - Cataract operation [Unknown]
  - Eye laser surgery [Unknown]
  - Surgery [Unknown]
  - Unevaluable event [Unknown]
  - Eye discharge [Unknown]
  - Ill-defined disorder [Unknown]
  - Visual impairment [Unknown]
  - Condition aggravated [Unknown]
  - Eyelid margin crusting [Unknown]
  - Dry eye [Unknown]
  - Discomfort [Unknown]
  - Vision blurred [Unknown]
  - Product container issue [Unknown]
  - Product use complaint [Unknown]

NARRATIVE: CASE EVENT DATE: 20200101
